FAERS Safety Report 8576530-8 (Version None)
Quarter: 2012Q3

REPORT INFORMATION
  Report Type: 
  Country: None (occurrence: None)
  Receive Date: 20120807
  Receipt Date: 20120723
  Transmission Date: 20120928
  Serious: Yes (Other)
  Sender: FDA-Public Use
  Company Number: DE-ROCHE-668942

PATIENT

DRUGS (7)
  1. CYCLOSPORINE [Suspect]
     Indication: IMMUNOSUPPRESSION
     Dosage: 1-3 MG/KG
     Route: 042
  2. CYCLOSPORINE [Suspect]
     Dosage: 4-18 MG/KG/DAY
     Route: 048
  3. CELLCEPT [Suspect]
     Indication: PROPHYLAXIS AGAINST TRANSPLANT REJECTION
     Dosage: ROUTE: NASOGATRIC ALSO
     Route: 042
  4. METHYLPREDNISOLONE [Suspect]
     Dosage: 3 DOSES
     Route: 042
  5. PREDNISOLONE [Suspect]
     Indication: IMMUNOSUPPRESSION
     Dosage: 0.5-1 MG/KG/DAY
     Route: 048
  6. CELLCEPT [Suspect]
     Dosage: 2-3 GRAMS
     Route: 048
  7. METHYLPREDNISOLONE [Suspect]
     Indication: IMMUNOSUPPRESSION
     Dosage: 500 MG-1 G
     Route: 042

REACTIONS (7)
  - OBLITERATIVE BRONCHIOLITIS [None]
  - VIRAL INFECTION [None]
  - BACTERIAL INFECTION [None]
  - FUNGAL INFECTION [None]
  - TRANSPLANT REJECTION [None]
  - PANCYTOPENIA [None]
  - RENAL FAILURE [None]
